FAERS Safety Report 9021754 (Version 1)
Quarter: 2013Q1

REPORT INFORMATION
  Report Type: Spontaneous
  Country: US (occurrence: US)
  Receive Date: 20130119
  Receipt Date: 20130119
  Transmission Date: 20140127
  Serious: No
  Sender: FDA-Public Use
  Company Number: US-ALLERGAN-1206492US

PATIENT
  Age: 59 Year
  Sex: Female

DRUGS (4)
  1. BOTOX? [Suspect]
     Indication: MIGRAINE
     Dosage: UNK
     Route: 030
     Dates: start: 20120420, end: 20120420
  2. IMITREX [Concomitant]
     Indication: MIGRAINE
     Dosage: UNK
  3. FIORICET [Concomitant]
     Indication: MIGRAINE
     Dosage: UNK
  4. HYDROCODONE [Concomitant]
     Indication: PAIN
     Dosage: 10 MG, PRN

REACTIONS (5)
  - Muscle tightness [Unknown]
  - Oropharyngeal pain [Unknown]
  - Neck pain [Not Recovered/Not Resolved]
  - Muscular weakness [Unknown]
  - Migraine [Unknown]
